FAERS Safety Report 8001283-1 (Version None)
Quarter: 2011Q4

REPORT INFORMATION
  Report Type: 
  Country: None (occurrence: None)
  Receive Date: 20111222
  Receipt Date: 20111221
  Transmission Date: 20120403
  Serious: Yes (Other)
  Sender: FDA-Public Use
  Company Number: FR-BAYER-2011-122680

PATIENT
  Sex: Male

DRUGS (1)
  1. BETASERON [Suspect]
     Dosage: UNK
     Dates: start: 20090101

REACTIONS (2)
  - DEPRESSION SUICIDAL [None]
  - ALCOHOLIC [None]
